FAERS Safety Report 20738801 (Version 2)
Quarter: 2022Q2

REPORT INFORMATION
  Report Type: Spontaneous
  Country: US (occurrence: US)
  Receive Date: 20220422
  Receipt Date: 20220513
  Transmission Date: 20220721
  Serious: Yes (Hospitalization, Other)
  Sender: FDA-Public Use
  Company Number: US-TAKEDA-2022TUS024462

PATIENT
  Sex: Female
  Weight: 91 kg

DRUGS (4)
  1. GAMMAGARD LIQUID [Suspect]
     Active Substance: HUMAN IMMUNOGLOBULIN G
     Indication: Chronic inflammatory demyelinating polyradiculoneuropathy
     Dosage: UNK UNK, Q3WEEKS
     Route: 042
     Dates: start: 20211125, end: 20220224
  2. ELIQUIS [Concomitant]
     Active Substance: APIXABAN
     Indication: Thrombosis
     Route: 065
  3. VITAMINS [Concomitant]
     Active Substance: VITAMINS
     Route: 065
  4. INSULIN NOS [Concomitant]
     Active Substance: INSULIN NOS
     Dosage: UNK UNK, QID
     Route: 065

REACTIONS (10)
  - Diabetes mellitus [Not Recovered/Not Resolved]
  - Internal haemorrhage [Unknown]
  - Pulmonary thrombosis [Recovered/Resolved]
  - Infection [Recovered/Resolved]
  - Pancreatic disorder [Unknown]
  - Visual impairment [Recovered/Resolved]
  - Liver disorder [Recovering/Resolving]
  - Peripheral swelling [Recovered/Resolved]
  - Mobility decreased [Not Recovered/Not Resolved]
  - Areflexia [Unknown]
